FAERS Safety Report 7555806-7 (Version None)
Quarter: 2011Q2

REPORT INFORMATION
  Report Type: 
  Country: None (occurrence: None)
  Receive Date: 20110618
  Receipt Date: 20100110
  Transmission Date: 20111010
  Serious: Yes (Death, Other)
  Sender: FDA-Public Use
  Company Number: US-BAYER-201010463NA

PATIENT
  Age: 44 Year
  Sex: Male
  Weight: 127 kg

DRUGS (19)
  1. LASIX [Concomitant]
     Dosage: 20 MG, UNK
     Route: 042
     Dates: start: 20060621
  2. TRASYLOL [Suspect]
     Indication: CORONARY ARTERY BYPASS
     Dosage: 1 ML, UNK
     Route: 042
     Dates: start: 20060621, end: 20060621
  3. COZAAR [Concomitant]
     Dosage: 25 MG, UNK
     Route: 048
  4. ANCEF [Concomitant]
     Dosage: 3 GM, UNK
     Route: 042
     Dates: start: 20060621
  5. PROPOFOL [Concomitant]
     Dosage: 150 MG, UNK
     Route: 042
     Dates: start: 20060621
  6. MILRINONE [Concomitant]
     Dosage: UNK
     Route: 042
     Dates: start: 20060621
  7. ALBUMIN (HUMAN) [Concomitant]
     Dosage: 100 ML, UNK
     Route: 042
     Dates: start: 20060621
  8. LEVOPHED [Concomitant]
     Dosage: UNK
     Route: 042
     Dates: start: 20060621
  9. SODIUM BICARBONATE [Concomitant]
     Dosage: 25 ML, UNK
     Route: 042
     Dates: start: 20060621
  10. TRASYLOL [Suspect]
     Dosage: 50 ML/HR
     Route: 042
     Dates: start: 20060621, end: 20060621
  11. LIDOCAINE [Concomitant]
     Dosage: 100 MG, UNK
     Route: 042
     Dates: start: 20060621
  12. FENTANYL-100 [Concomitant]
     Dosage: 25 MG, UNK
     Route: 042
     Dates: start: 20060621
  13. PANCURON [Concomitant]
     Dosage: 100 MG, UNK
     Route: 042
     Dates: start: 20060621
  14. TRASYLOL [Suspect]
     Indication: CARDIAC OPERATION
     Dosage: 200 ML, UNK
     Route: 042
     Dates: start: 20060621, end: 20060621
  15. HEPARIN [Concomitant]
     Dosage: 37, 000 UNITS, UNK
     Route: 042
     Dates: start: 20060621
  16. MIDAZOLAM HCL [Concomitant]
     Dosage: 5 MG, UNK
     Route: 042
     Dates: start: 20060621
  17. COREG [Concomitant]
     Dosage: 5 MG, UNK
     Route: 048
  18. LIPITOR [Concomitant]
     Route: 048
  19. MANNITOL [Concomitant]
     Dosage: 300 ML, UNK
     Route: 042
     Dates: start: 20060621

REACTIONS (11)
  - DEATH [None]
  - CEREBROVASCULAR ACCIDENT [None]
  - INJURY [None]
  - FEAR [None]
  - ANHEDONIA [None]
  - ANXIETY [None]
  - UNEVALUABLE EVENT [None]
  - MYOCARDIAL INFARCTION [None]
  - PAIN [None]
  - DEPRESSION [None]
  - RENAL FAILURE [None]
